FAERS Safety Report 5323720-3 (Version None)
Quarter: 2007Q2

REPORT INFORMATION
  Report Type: 
  Country: None (occurrence: None)
  Receive Date: 20070222
  Receipt Date: 20070124
  Transmission Date: 20071010
  Serious: Yes (Other)
  Sender: FDA-Public Use
  Company Number: 2007006962

PATIENT
  Sex: Female

DRUGS (1)
  1. EXUBERA [Suspect]

REACTIONS (2)
  - CHEST DISCOMFORT [None]
  - RASH [None]
